FAERS Safety Report 4763247-0 (Version None)
Quarter: 2005Q3

REPORT INFORMATION
  Report Type: 
  Country: None (occurrence: None)
  Receive Date: 20050902
  Receipt Date: 20050808
  Transmission Date: 20060218
  Serious: Yes (Hospitalization, Disabling)
  Sender: FDA-Public Use
  Company Number: 2005-131322-NL

PATIENT
  Age: 73 Year
  Sex: Male

DRUGS (5)
  1. DEXAMETHASONE [Suspect]
     Indication: CHRONIC MYELOID LEUKAEMIA
     Dosage: 2 MG ORAL
     Route: 048
     Dates: end: 20050724
  2. PARACETAMOL [Concomitant]
  3. CODEINE [Concomitant]
  4. QUININE SULPHATE [Concomitant]
  5. IMATINIB MESILATE [Concomitant]

REACTIONS (3)
  - DIFFICULTY IN WALKING [None]
  - DYSSTASIA [None]
  - PAIN IN EXTREMITY [None]
